FAERS Safety Report 24809341 (Version 1)
Quarter: 2025Q1

REPORT INFORMATION
  Report Type: Spontaneous
  Country: US (occurrence: US)
  Receive Date: 20250106
  Receipt Date: 20250106
  Transmission Date: 20250409
  Serious: No
  Sender: GLAXOSMITHKLINE
  Company Number: US-GSKCCFUS-Case-02184020_AE-120140

PATIENT

DRUGS (1)
  1. JESDUVROQ [Suspect]
     Active Substance: DAPRODUSTAT
     Indication: Product used for unknown indication

REACTIONS (1)
  - Off label use [Unknown]
